FAERS Safety Report 5103535-1 (Version None)
Quarter: 2006Q3

REPORT INFORMATION
  Report Type: 
  Country: None (occurrence: None)
  Receive Date: 20060913
  Receipt Date: 20060907
  Transmission Date: 20061208
  Serious: Yes (Other)
  Sender: FDA-Public Use
  Company Number: US-AVENTIS-200617611US

PATIENT
  Sex: Male

DRUGS (2)
  1. LOVENOX [Suspect]
     Indication: TOOTH EXTRACTION
     Dosage: DOSE: UNK
  2. COUMADIN [Concomitant]
     Dosage: DOSE: UNK

REACTIONS (1)
  - TRANSIENT ISCHAEMIC ATTACK [None]
